FAERS Safety Report 5871385-4 (Version None)
Quarter: 2008Q3

REPORT INFORMATION
  Report Type: 
  Country: None (occurrence: None)
  Receive Date: 20080904
  Receipt Date: 20080904
  Transmission Date: 20090109
  Serious: Yes (Other)
  Sender: FDA-Public Use
  Company Number: None

PATIENT
  Sex: Female
  Weight: 68.0396 kg

DRUGS (2)
  1. BUPROPION HCL [Suspect]
     Dosage: ONCE QDAY PO
     Route: 048
     Dates: start: 20080205, end: 20080218
  2. BUPROPION HCL [Suspect]
     Dosage: ONCE BID PO
     Route: 048
     Dates: start: 20080218, end: 20080326

REACTIONS (4)
  - DEPRESSION [None]
  - DISEASE RECURRENCE [None]
  - FEELING ABNORMAL [None]
  - THERAPEUTIC RESPONSE UNEXPECTED WITH DRUG SUBSTITUTION [None]
